FAERS Safety Report 8030303-3 (Version None)
Quarter: 2012Q1

REPORT INFORMATION
  Report Type: 
  Country: None (occurrence: None)
  Receive Date: 20120109
  Receipt Date: 20120103
  Transmission Date: 20120608
  Serious: Yes (Hospitalization)
  Sender: FDA-Public Use
  Company Number: PHHY2011US66142

PATIENT
  Sex: Male

DRUGS (1)
  1. EXJADE [Suspect]
     Dosage: 500 MG, TID
     Route: 048

REACTIONS (5)
  - RASH [None]
  - THROMBOSIS [None]
  - DIARRHOEA [None]
  - NAUSEA [None]
  - VOMITING [None]
